FAERS Safety Report 5490235-1 (Version None)
Quarter: 2007Q4

REPORT INFORMATION
  Report Type: 
  Country: None (occurrence: None)
  Receive Date: 20071017
  Receipt Date: 20071003
  Transmission Date: 20080405
  Serious: Yes (Other)
  Sender: FDA-Public Use
  Company Number: SPI200700695

PATIENT
  Age: 59 Year
  Sex: Female

DRUGS (6)
  1. AMITIZA [Suspect]
     Indication: CONSTIPATION
     Dosage: 24 MCG, BID, ORAL
     Route: 048
     Dates: start: 20070929, end: 20070929
  2. MIRALAX [Concomitant]
  3. ZOLOFT [Concomitant]
  4. ESTRADIOL [Concomitant]
  5. HYDROCHLOROTHIAZIDE [Concomitant]
  6. ACETAMINOPHEN [Concomitant]

REACTIONS (9)
  - BLOOD POTASSIUM DECREASED [None]
  - CONVULSION [None]
  - DYSPNOEA [None]
  - HOT FLUSH [None]
  - MUSCLE CONTRACTIONS INVOLUNTARY [None]
  - MUSCLE SPASMS [None]
  - MUSCLE TIGHTNESS [None]
  - MYALGIA [None]
  - PARAESTHESIA [None]
